FAERS Safety Report 20988512 (Version 1)
Quarter: 2022Q2

REPORT INFORMATION
  Report Type: Spontaneous
  Country: US (occurrence: US)
  Receive Date: 20220621
  Receipt Date: 20220621
  Transmission Date: 20220721
  Serious: No
  Sender: FDA-Public Use
  Company Number: US-LUPIN PHARMACEUTICALS INC.-2022-08756

PATIENT
  Sex: Male
  Weight: 79.365 kg

DRUGS (1)
  1. LOSARTAN POTASSIUM AND HYDROCHLOROTHIAZIDE [Suspect]
     Active Substance: HYDROCHLOROTHIAZIDE\LOSARTAN POTASSIUM
     Indication: Blood pressure increased
     Dosage: 1 DOSAGE FORM, QD
     Route: 048

REACTIONS (4)
  - Bone pain [Unknown]
  - Abdominal pain upper [Unknown]
  - Poor quality product administered [Unknown]
  - Recalled product administered [Unknown]
